FAERS Safety Report 6668594-3 (Version None)
Quarter: 2010Q2

REPORT INFORMATION
  Report Type: 
  Country: None (occurrence: None)
  Receive Date: 20100406
  Receipt Date: 20100402
  Transmission Date: 20101027
  Serious: Yes (Hospitalization)
  Sender: FDA-Public Use
  Company Number: JP-B.I. PHARMACEUTICALS,INC./RIDGEFIELD-2010-BP-03814NB

PATIENT
  Sex: Female

DRUGS (1)
  1. MICARDIS [Suspect]
     Dosage: 40 MG
     Route: 048

REACTIONS (1)
  - CEREBROVASCULAR ACCIDENT [None]
